FAERS Safety Report 8547753-9 (Version None)
Quarter: 2012Q3

REPORT INFORMATION
  Report Type: 
  Country: None (occurrence: None)
  Receive Date: 20120727
  Receipt Date: 20111208
  Transmission Date: 20120928
  Serious: Yes (Hospitalization)
  Sender: FDA-Public Use
  Company Number: US-ASTRAZENECA-2011SE74617

PATIENT
  Age: 20 Year
  Sex: Male

DRUGS (1)
  1. SEROQUEL [Suspect]
     Route: 048

REACTIONS (5)
  - INSOMNIA [None]
  - CONVULSION [None]
  - DRUG DOSE OMISSION [None]
  - TREMOR [None]
  - ANXIETY [None]
